FAERS Safety Report 5240608-7 (Version None)
Quarter: 2007Q1

REPORT INFORMATION
  Report Type: 
  Country: None (occurrence: None)
  Receive Date: 20061208
  Receipt Date: 20051006
  Transmission Date: 20070707
  Serious: Yes (Other)
  Sender: FDA-Public Use
  Company Number: 2005UW14947

PATIENT
  Age: 62 Year
  Sex: Female
  Weight: 90.718 kg

DRUGS (4)
  1. CRESTOR [Suspect]
     Indication: BLOOD CHOLESTEROL INCREASED
     Dosage: 10 MG PO
     Route: 048
  2. ATENOLOL [Concomitant]
  3. NORVASC [Concomitant]
  4. ASPIRIN [Concomitant]

REACTIONS (3)
  - HYPOTRICHOSIS [None]
  - MUSCLE SPASMS [None]
  - OEDEMA PERIPHERAL [None]
